FAERS Safety Report 25056789 (Version 1)
Quarter: 2025Q1

REPORT INFORMATION
  Report Type: Spontaneous
  Country: GB (occurrence: GB)
  Receive Date: 20250310
  Receipt Date: 20250310
  Transmission Date: 20250408
  Serious: Yes (Other)
  Sender: UCB
  Company Number: None

PATIENT
  Age: 70 Year
  Sex: Female
  Weight: 49 kg

DRUGS (1)
  1. BIMZELX [Suspect]
     Active Substance: BIMEKIZUMAB-BKZX
     Indication: Psoriatic arthropathy
     Dates: start: 20250117, end: 20250122

REACTIONS (1)
  - Swelling face [Recovered/Resolved with Sequelae]

NARRATIVE: CASE EVENT DATE: 20250122
